FAERS Safety Report 4409602-X (Version None)
Quarter: 2004Q3

REPORT INFORMATION
  Report Type: 
  Country: None (occurrence: None)
  Receive Date: 20040726
  Receipt Date: 20040713
  Transmission Date: 20050211
  Serious: Yes (Hospitalization)
  Sender: FDA-Public Use
  Company Number: 2004-UK-00672UK

PATIENT
  Age: 42 Year
  Sex: Female

DRUGS (3)
  1. COMBIVENT [Suspect]
     Indication: ASTHMA
     Dosage: 6 METERED DOSES, IH
     Route: 055
     Dates: start: 20040602, end: 20040615
  2. VENTOLIN [Concomitant]
  3. QUININE SULPHATE (QUININE SULFATE) [Concomitant]

REACTIONS (2)
  - EUPHORIC MOOD [None]
  - HALLUCINATION [None]
